FAERS Safety Report 4546464-4 (Version None)
Quarter: 2005Q1

REPORT INFORMATION
  Report Type: 
  Country: None (occurrence: None)
  Receive Date: 20050105
  Receipt Date: 20041221
  Transmission Date: 20050727
  Serious: Yes (Death, Hospitalization)
  Sender: FDA-Public Use
  Company Number: 2004AL000612

PATIENT
  Age: 37 Year
  Sex: Male

DRUGS (3)
  1. ACETAMINOPHEN [Suspect]
     Indication: FACIAL BONES FRACTURE
  2. ACETAMINOPHEN [Suspect]
     Indication: FACIAL BONES FRACTURE
  3. ETHANOL [Suspect]
     Indication: FACIAL BONES FRACTURE

REACTIONS (28)
  - ADRENAL INSUFFICIENCY [None]
  - ALCOHOL USE [None]
  - ANAEMIA [None]
  - ASCITES [None]
  - BRAIN ABSCESS [None]
  - BRONCHOPNEUMONIA [None]
  - COAGULOPATHY [None]
  - ENCEPHALOPATHY [None]
  - EXTREMITY NECROSIS [None]
  - FACIAL BONES FRACTURE [None]
  - FUNGAEMIA [None]
  - FUNGAL INFECTION [None]
  - FUNGUS URINE TEST POSITIVE [None]
  - GASTROINTESTINAL HAEMORRHAGE [None]
  - GENERALISED OEDEMA [None]
  - HAEMODIALYSIS [None]
  - HEPATIC FAILURE [None]
  - HEPATIC NECROSIS [None]
  - HYPOCALCAEMIA [None]
  - INTENTIONAL MISUSE [None]
  - JAUNDICE [None]
  - OVERDOSE [None]
  - PANCREATIC NECROSIS [None]
  - PANCREATITIS [None]
  - PLEURAL EFFUSION [None]
  - PNEUMONIA ASPIRATION [None]
  - RENAL FAILURE [None]
  - RESPIRATORY FAILURE [None]
